FAERS Safety Report 12395790 (Version 1)
Quarter: 2016Q2

REPORT INFORMATION
  Report Type: Spontaneous
  Country: US (occurrence: US)
  Receive Date: 20160523
  Receipt Date: 20160523
  Transmission Date: 20160815
  Serious: No
  Sender: FDA-Public Use
  Company Number: US-BION-20160180

PATIENT
  Sex: Female

DRUGS (1)
  1. IBUPROFEN CAPSULES 200 MG [Suspect]
     Active Substance: IBUPROFEN
     Route: 048

REACTIONS (4)
  - Glossodynia [None]
  - Product substitution issue [None]
  - Oral discomfort [Recovered/Resolved]
  - Oral discomfort [None]

NARRATIVE: CASE EVENT DATE: 20160311
